FAERS Safety Report 7602625-9 (Version None)
Quarter: 2011Q3

REPORT INFORMATION
  Report Type: 
  Country: None (occurrence: None)
  Receive Date: 20110701
  Receipt Date: 20090518
  Transmission Date: 20111222
  Serious: Yes (Other)
  Sender: FDA-Public Use
  Company Number: SIM_00023_2011

PATIENT
  Sex: Female

DRUGS (2)
  1. EARACHE RELIEF (HOMEOPATHIC) [Suspect]
     Indication: EAR PAIN
     Dosage: (DF AURICULAR (OTIC))
     Route: 001
     Dates: start: 20090518
  2. EARACHE RELIEF (HOMEOPATHIC) [Suspect]
     Indication: EAR INFECTION
     Dosage: (DF AURICULAR (OTIC))
     Route: 001
     Dates: start: 20090518

REACTIONS (3)
  - VOMITING [None]
  - DRUG HYPERSENSITIVITY [None]
  - DIZZINESS [None]
